FAERS Safety Report 22861280 (Version 4)
Quarter: 2024Q2

REPORT INFORMATION
  Report Type: Spontaneous
  Country: SI (occurrence: SI)
  Receive Date: 20230824
  Receipt Date: 20240529
  Transmission Date: 20240716
  Serious: Yes (Hospitalization)
  Sender: FDA-Public Use
  Company Number: None

PATIENT
  Age: 37 Year
  Sex: Female
  Weight: 60 kg

DRUGS (8)
  1. FOLLITROPIN BETA [Suspect]
     Active Substance: FOLLITROPIN BETA
     Indication: In vitro fertilisation
     Dosage: 200 I.E.
     Route: 058
     Dates: start: 20150416, end: 20150422
  2. FOLLITROPIN BETA [Suspect]
     Active Substance: FOLLITROPIN BETA
     Indication: Infertility female
  3. SUPREFACT [Suspect]
     Active Substance: BUSERELIN
     Indication: Infertility female
     Dosage: STOP INJECTION (STRENGTH: 1 MG/ML)
     Route: 058
     Dates: start: 20150424, end: 20150424
  4. SUPREFACT [Suspect]
     Active Substance: BUSERELIN
     Indication: In vitro fertilisation
  5. ORGALUTRAN [Concomitant]
     Active Substance: GANIRELIX ACETATE
     Indication: In vitro fertilisation
     Dosage: 0,25
  6. ORGALUTRAN [Concomitant]
     Active Substance: GANIRELIX ACETATE
     Indication: Infertility female
  7. CETROTIDE [Concomitant]
     Active Substance: CETRORELIX ACETATE
     Indication: In vitro fertilisation
     Dosage: 0.25 (FORMULATION: POWDER AND SOLVENT FOR SOLUTION FOR INJECTION)
  8. CETROTIDE [Concomitant]
     Active Substance: CETRORELIX ACETATE
     Indication: Infertility female

REACTIONS (2)
  - Ascites [Recovered/Resolved]
  - Ovarian hyperstimulation syndrome [Recovered/Resolved]

NARRATIVE: CASE EVENT DATE: 20150425
